FAERS Safety Report 7482860-3 (Version None)
Quarter: 2011Q2

REPORT INFORMATION
  Report Type: 
  Country: None (occurrence: None)
  Receive Date: 20110516
  Receipt Date: 20110510
  Transmission Date: 20111010
  Serious: Yes (Other)
  Sender: FDA-Public Use
  Company Number: US-PFIZER INC-2011100065

PATIENT
  Sex: Female

DRUGS (2)
  1. CLEOCIN [Suspect]
     Dosage: 150 MG, UNK
  2. CLINDAMYCIN PHOSPHATE [Suspect]
     Dosage: UNK

REACTIONS (7)
  - OROPHARYNGEAL BLISTERING [None]
  - IRRITABLE BOWEL SYNDROME [None]
  - DRUG HYPERSENSITIVITY [None]
  - MUSCLE SPASMS [None]
  - TOOTH INFECTION [None]
  - DIARRHOEA [None]
  - EAR PAIN [None]
